FAERS Safety Report 20131145 (Version 1)
Quarter: 2021Q4

REPORT INFORMATION
  Report Type: Spontaneous
  Country: NZ (occurrence: None)
  Receive Date: 20211130
  Receipt Date: 20211130
  Transmission Date: 20220303
  Serious: Yes (Other)
  Sender: FDA-Public Use
  Company Number: NZ-ROCHE-2962111

PATIENT
  Age: 44 Year
  Sex: Female

DRUGS (3)
  1. HERCEPTIN [Suspect]
     Active Substance: TRASTUZUMAB
     Indication: Product used for unknown indication
     Route: 065
  2. KADCYLA [Suspect]
     Active Substance: ADO-TRASTUZUMAB EMTANSINE
     Indication: Product used for unknown indication
     Route: 065
  3. VINORELBINE [Suspect]
     Active Substance: VINORELBINE TARTRATE
     Indication: Product used for unknown indication
     Route: 065

REACTIONS (2)
  - Disease progression [Unknown]
  - Disease recurrence [Unknown]
